FAERS Safety Report 4877347-8 (Version None)
Quarter: 2006Q1

REPORT INFORMATION
  Report Type: 
  Country: None (occurrence: None)
  Receive Date: 20060106
  Receipt Date: 20051222
  Transmission Date: 20060701
  Serious: Yes (Hospitalization)
  Sender: FDA-Public Use
  Company Number: MPS1-10432

PATIENT
  Age: 20 Month
  Sex: Female
  Weight: 11 kg

DRUGS (6)
  1. ALDURAZYME [Suspect]
     Indication: MUCOPOLYSACCHARIDOSIS IH
     Dosage: 100 U/KG QWK IV
     Route: 042
     Dates: start: 20050520, end: 20051201
  2. FENTANYL CITRATE [Concomitant]
  3. PROPOFOL [Concomitant]
  4. SEVOFLURANE [Concomitant]
  5. CEFAZOLIN SODIUM [Concomitant]
  6. FLOMOXEF SODIUM [Concomitant]

REACTIONS (2)
  - CONDITION AGGRAVATED [None]
  - SLEEP APNOEA SYNDROME [None]
